FAERS Safety Report 18147680 (Version 1)
Quarter: 2020Q3

REPORT INFORMATION
  Report Type: Other
  Country: NL (occurrence: NL)
  Receive Date: 20200814
  Receipt Date: 20200814
  Transmission Date: 20201103
  Serious: Yes (Other)
  Sender: FDA-Public Use
  Company Number: NL-ROCHE-2656419

PATIENT

DRUGS (4)
  1. METHYLPREDNISOLONE. [Concomitant]
     Active Substance: METHYLPREDNISOLONE
     Route: 042
  2. METHYLPREDNISOLONE. [Concomitant]
     Active Substance: METHYLPREDNISOLONE
     Indication: COVID-19
     Route: 042
  3. TOCILIZUMAB. [Suspect]
     Active Substance: TOCILIZUMAB
     Indication: COVID-19
     Route: 065
  4. CEFTRIAXONE. [Suspect]
     Active Substance: CEFTRIAXONE
     Indication: COVID-19
     Route: 065

REACTIONS (10)
  - Pulmonary embolism [Unknown]
  - Cardiac failure congestive [Unknown]
  - Renal failure [Unknown]
  - Off label use [Unknown]
  - Bacterial infection [Unknown]
  - Intentional product use issue [Unknown]
  - Pneumothorax [Unknown]
  - Cerebrovascular accident [Unknown]
  - Arrhythmia [Unknown]
  - Deep vein thrombosis [Unknown]
